FAERS Safety Report 7227386-7 (Version None)
Quarter: 2011Q1

REPORT INFORMATION
  Report Type: 
  Country: None (occurrence: None)
  Receive Date: 20110114
  Receipt Date: 20101230
  Transmission Date: 20110831
  Serious: Yes (Death, Other)
  Sender: FDA-Public Use
  Company Number: JP-SANOFI-AVENTIS-2011SA002379

PATIENT
  Age: 35 Year
  Sex: Female
  Weight: 32 kg

DRUGS (19)
  1. PANIPENEM [Concomitant]
     Dates: start: 20100728
  2. SULFAMETHOXAZOLE AND TRIMETHOPRIM [Concomitant]
     Dates: start: 20100702, end: 20100729
  3. MORPHINE [Concomitant]
     Dates: start: 20100706, end: 20100708
  4. PIPERACILLIN [Concomitant]
     Dates: start: 20100707, end: 20100720
  5. ANTITHYMOCYTE IMMUNOGLOBULIN [Suspect]
     Indication: STEM CELL TRANSPLANT
     Route: 051
     Dates: start: 20100802, end: 20100802
  6. ETOPOSIDE [Concomitant]
     Dates: start: 20100728, end: 20100729
  7. CIPROFLAXACIN [Concomitant]
     Dates: start: 20100821
  8. OFORTA [Suspect]
     Route: 065
     Dates: start: 20100702, end: 20100729
  9. BUSULFAN [Concomitant]
     Dates: start: 20100730, end: 20100801
  10. MELPHALAN [Concomitant]
     Dates: start: 20100801, end: 20100802
  11. ITRACONAZOLE [Concomitant]
  12. GEMTUZUMAB OZOGAMICIN [Concomitant]
     Dates: start: 20100709
  13. CEFEPIME [Concomitant]
     Dates: start: 20100702, end: 20100728
  14. MICAFUNGIN [Concomitant]
     Dates: start: 20100727, end: 20100823
  15. VANCOMYCIN [Concomitant]
     Dates: start: 20100724
  16. PENTAZOCINE LACTATE [Concomitant]
     Dates: start: 20100807, end: 20100810
  17. METHYLPREDNISOLONE SODIUM SUCCINATE [Concomitant]
     Dates: start: 20100709
  18. OFORTA [Suspect]
     Indication: STEM CELL TRANSPLANT
     Route: 065
     Dates: start: 20100702, end: 20100729
  19. TACROLIMUS [Concomitant]
     Dates: start: 20100702, end: 20100820

REACTIONS (3)
  - RENAL FAILURE [None]
  - CANDIDA PNEUMONIA [None]
  - CARDIAC FAILURE [None]
